FAERS Safety Report 4496723-9 (Version None)
Quarter: 2004Q4

REPORT INFORMATION
  Report Type: 
  Country: None (occurrence: None)
  Receive Date: 20041109
  Receipt Date: 20040109
  Transmission Date: 20050328
  Serious: Yes (Hospitalization)
  Sender: FDA-Public Use
  Company Number: GB-BRISTOL-MYERS SQUIBB COMPANY-12474573

PATIENT
  Age: 29 Year
  Sex: Female

DRUGS (4)
  1. ARIPIPRAZOLE [Suspect]
     Indication: SCHIZOPHRENIA
     Dosage: 15 MG 05-DEC-03 TO 05-JAN-04; THEN 30 MG 06-JAN-04 TO CONT
     Route: 048
     Dates: start: 20031205
  2. ZOPICLONE [Concomitant]
     Dates: start: 20031222
  3. SERTRALINE [Concomitant]
     Dates: start: 20011008
  4. DIAZEPAM [Concomitant]
     Dates: start: 20040106

REACTIONS (4)
  - LACERATION [None]
  - SCHIZOPHRENIA [None]
  - SELF-INJURIOUS IDEATION [None]
  - THERAPEUTIC RESPONSE DECREASED [None]
